FAERS Safety Report 6409780-7 (Version None)
Quarter: 2009Q4

REPORT INFORMATION
  Report Type: 
  Country: None (occurrence: None)
  Receive Date: 20091021
  Receipt Date: 20091021
  Transmission Date: 20100525
  Serious: No
  Sender: FDA-Public Use
  Company Number: None

PATIENT
  Age: 87 Year
  Sex: Female
  Weight: 54.4316 kg

DRUGS (1)
  1. CIPRO [Suspect]
     Indication: CYSTOSCOPY
     Dates: start: 20090301

REACTIONS (1)
  - ABDOMINAL PAIN UPPER [None]
